FAERS Safety Report 7286252-1 (Version None)
Quarter: 2011Q1

REPORT INFORMATION
  Report Type: 
  Country: None (occurrence: None)
  Receive Date: 20110210
  Receipt Date: 20110202
  Transmission Date: 20110831
  Serious: Yes (Hospitalization)
  Sender: FDA-Public Use
  Company Number: PHHO2011DE01049

PATIENT
  Sex: Male
  Weight: 96 kg

DRUGS (2)
  1. PREDNISOLONE [Concomitant]
     Indication: LIVER TRANSPLANT
     Dosage: 5 MG, PER DAY
     Route: 048
     Dates: start: 20110113
  2. EVEROLIMUS [Suspect]
     Indication: LIVER TRANSPLANT
     Dosage: 2 MG, PER DAY
     Route: 048
     Dates: start: 20110113

REACTIONS (3)
  - HEPATIC STEATOSIS [None]
  - TRANSAMINASES INCREASED [None]
  - HEPATOTOXICITY [None]
